FAERS Safety Report 18151368 (Version 2)
Quarter: 2020Q3

REPORT INFORMATION
  Report Type: Spontaneous
  Country: CN (occurrence: CN)
  Receive Date: 20200814
  Receipt Date: 20200819
  Transmission Date: 20201103
  Serious: Yes (Other)
  Sender: FDA-Public Use
  Company Number: CN-ASTRAZENECA-2020SF01948

PATIENT
  Age: 29073 Day
  Sex: Male

DRUGS (4)
  1. SALINE WATER [Concomitant]
  2. IMFINZI [Suspect]
     Active Substance: DURVALUMAB
     Indication: GASTROINTESTINAL CARCINOMA
     Dosage: 500.0MG UNKNOWN
     Route: 042
     Dates: start: 20200722
  3. IMFINZI [Suspect]
     Active Substance: DURVALUMAB
     Indication: GASTROINTESTINAL CARCINOMA
     Dosage: 500.0MG UNKNOWN
     Route: 042
     Dates: start: 20200805
  4. IMFINZI [Suspect]
     Active Substance: DURVALUMAB
     Indication: GASTROINTESTINAL CARCINOMA
     Dosage: 500.0MG UNKNOWN
     Route: 042
     Dates: start: 20200708

REACTIONS (4)
  - Tumour marker increased [Unknown]
  - Abdominal pain upper [Unknown]
  - Gastrointestinal sounds abnormal [Recovering/Resolving]
  - Abdominal pain [Recovered/Resolved]

NARRATIVE: CASE EVENT DATE: 20200721
